FAERS Safety Report 26098090 (Version 2)
Quarter: 2025Q4

REPORT INFORMATION
  Report Type: Spontaneous
  Country: BY (occurrence: BY)
  Receive Date: 20251127
  Receipt Date: 20251214
  Transmission Date: 20260118
  Serious: Yes (Other)
  Sender: SANDOZ
  Company Number: BY-SANDOZ-SDZ2025BY083611

PATIENT
  Age: 27 Year
  Sex: Female
  Weight: 90 kg

DRUGS (2)
  1. MOMETASONE FUROATE [Suspect]
     Active Substance: MOMETASONE FUROATE
     Indication: Preoperative care
     Dosage: 2 SPRAYS IN EACH NOSTRIL 2 TIMES DAILY/ 2 IRRIGATIONS 2 TIMES A DAY
     Route: 045
     Dates: start: 202412, end: 202412
  2. MOMETASONE FUROATE [Suspect]
     Active Substance: MOMETASONE FUROATE
     Indication: Nasal septal operation

REACTIONS (1)
  - Blood pressure increased [Not Recovered/Not Resolved]

NARRATIVE: CASE EVENT DATE: 20241201
